FAERS Safety Report 5333139-7 (Version None)
Quarter: 2007Q2

REPORT INFORMATION
  Report Type: 
  Country: None (occurrence: None)
  Receive Date: 20070521
  Receipt Date: 20070521
  Transmission Date: 20071010
  Serious: Yes (Disabling)
  Sender: FDA-Public Use
  Company Number: None

PATIENT
  Age: 34 Year
  Sex: Female
  Weight: 65.7716 kg

DRUGS (1)
  1. AVELOX [Suspect]
     Indication: EAR INFECTION
     Dosage: 400 QD PO
     Route: 048
     Dates: start: 20070324, end: 20070424

REACTIONS (4)
  - COGNITIVE DISORDER [None]
  - HALLUCINATION [None]
  - HEART RATE DECREASED [None]
  - THINKING ABNORMAL [None]
